FAERS Safety Report 22758823 (Version 2)
Quarter: 2024Q1

REPORT INFORMATION
  Report Type: Report from Study
  Country: US (occurrence: US)
  Receive Date: 20230728
  Receipt Date: 20240311
  Transmission Date: 20240409
  Serious: Yes (Hospitalization, Other)
  Sender: FDA-Public Use
  Company Number: US-ABBVIE-5343785

PATIENT
  Sex: Male

DRUGS (1)
  1. HUMIRA [Suspect]
     Active Substance: ADALIMUMAB
     Indication: Rheumatoid arthritis
     Dosage: FORM STRENGTH : 40 MILLIGRAM, CITRATE FREE
     Route: 058
     Dates: start: 20220425

REACTIONS (2)
  - Bedridden [Not Recovered/Not Resolved]
  - Hospice care [Unknown]
